FAERS Safety Report 8051848-6 (Version None)
Quarter: 2012Q1

REPORT INFORMATION
  Report Type: 
  Country: None (occurrence: None)
  Receive Date: 20120118
  Receipt Date: 20120110
  Transmission Date: 20120608
  Serious: Yes (Hospitalization)
  Sender: FDA-Public Use
  Company Number: JP-VERTEX PHARMACEUTICALS INC.-AE-2012-000701

PATIENT
  Age: 69 Year
  Sex: Female

DRUGS (5)
  1. TELAVIC (TELAPREVIR) [Suspect]
     Indication: UNEVALUABLE EVENT
     Dates: start: 20111206, end: 20120108
  2. ALLOPURINOL [Concomitant]
     Route: 048
  3. SELEBEX [Concomitant]
     Route: 048
  4. DOGMATYL [Concomitant]
     Route: 048
  5. LOCHOLEST [Concomitant]
     Route: 048

REACTIONS (1)
  - ERYTHEMA MULTIFORME [None]
